FAERS Safety Report 5230449-9 (Version None)
Quarter: 2007Q1

REPORT INFORMATION
  Report Type: 
  Country: None (occurrence: None)
  Receive Date: 20070206
  Receipt Date: 20070124
  Transmission Date: 20070707
  Serious: Yes (Hospitalization)
  Sender: FDA-Public Use
  Company Number: US-ELI_LILLY_AND_COMPANY-US200611001709

PATIENT
  Age: 57 Year
  Sex: Female
  Weight: 88.435 kg

DRUGS (1)
  1. FORTEO [Suspect]
     Indication: OSTEOPOROSIS
     Dosage: 20 UG, UNK
     Dates: start: 20061017

REACTIONS (2)
  - BLOOD GLUCOSE INCREASED [None]
  - MENINGITIS BACTERIAL [None]
